FAERS Safety Report 10008835 (Version 2)
Quarter: 2014Q1

REPORT INFORMATION
  Report Type: Spontaneous
  Country: US (occurrence: US)
  Receive Date: 20140312
  Receipt Date: 20140312
  Transmission Date: 20141002
  Serious: No
  Sender: FDA-Public Use
  Company Number: US-INCYTE CORPORATION-2012IN000806

PATIENT
  Age: 76 Year
  Sex: Male
  Weight: 80.8 kg

DRUGS (2)
  1. JAKAFI [Suspect]
     Indication: MYELOFIBROSIS
     Dosage: 5 MG, BID
     Route: 048
     Dates: start: 20120114
  2. ARANESP [Concomitant]
     Indication: HAEMOGLOBIN DECREASED
     Dosage: 300 MCG, EVERY 2 WEEKS FOR HGB LESS THAN 10.0
     Route: 058

REACTIONS (2)
  - Fatigue [Not Recovered/Not Resolved]
  - Anaemia [Unknown]
